FAERS Safety Report 8315080-0 (Version None)
Quarter: 2012Q2

REPORT INFORMATION
  Report Type: 
  Country: None (occurrence: None)
  Receive Date: 20120426
  Receipt Date: 20120419
  Transmission Date: 20120825
  Serious: Yes (Other)
  Sender: FDA-Public Use
  Company Number: US-ABBOTT-12P-163-0927823-00

PATIENT
  Sex: Female
  Weight: 54.48 kg

DRUGS (5)
  1. SYNTHROID [Suspect]
  2. NEXIUM [Concomitant]
     Indication: PRODUCT USED FOR UNKNOWN INDICATION
  3. SYNTHROID [Suspect]
     Indication: HYPOTHYROIDISM
     Dates: start: 20120401
  4. SYNTHROID [Suspect]
     Indication: HYPOTHYROIDISM
     Dates: end: 20120401
  5. LISINOPRIL [Concomitant]
     Indication: PRODUCT USED FOR UNKNOWN INDICATION

REACTIONS (2)
  - THYROID FUNCTION TEST ABNORMAL [None]
  - GOITRE [None]
